FAERS Safety Report 15684821 (Version 2)
Quarter: 2018Q4

REPORT INFORMATION
  Report Type: Report from Study
  Country: AU (occurrence: AU)
  Receive Date: 20181204
  Receipt Date: 20181212
  Transmission Date: 20190205
  Serious: No
  Sender: FDA-Public Use
  Company Number: AU-JNJFOC-20181131625

PATIENT
  Age: 43 Year
  Sex: Female

DRUGS (15)
  1. ENOXAPARIN [Concomitant]
     Active Substance: ENOXAPARIN
     Route: 058
     Dates: start: 20140724, end: 20140728
  2. ETONOGESTREL [Concomitant]
     Active Substance: ETONOGESTREL
     Indication: CONTRACEPTION
     Route: 062
     Dates: start: 20140422, end: 20141017
  3. FEMME [Concomitant]
     Indication: CONTRACEPTION
     Route: 048
     Dates: start: 20141103, end: 20141130
  4. USTEKINUMAB [Suspect]
     Active Substance: USTEKINUMAB
     Indication: CROHN^S DISEASE
     Route: 058
     Dates: start: 20121017
  5. PANADEINE CO [Concomitant]
     Active Substance: ACETAMINOPHEN\CODEINE PHOSPHATE
     Indication: HEADACHE
     Route: 048
  6. HYOSCINE [Concomitant]
     Active Substance: SCOPOLAMINE
     Indication: COLONOSCOPY
     Route: 042
     Dates: start: 20140725, end: 20140725
  7. METOCLOPRAMIDE. [Concomitant]
     Active Substance: METOCLOPRAMIDE
     Indication: COLONOSCOPY
     Route: 048
     Dates: start: 20140725, end: 20140725
  8. CODEINE [Concomitant]
     Active Substance: CODEINE
     Indication: CROHN^S DISEASE
     Route: 048
     Dates: start: 20140701, end: 20140812
  9. GASTROSTOP [Concomitant]
     Indication: DIARRHOEA
     Route: 048
  10. HYDROCORTISONE. [Concomitant]
     Active Substance: HYDROCORTISONE
     Indication: CROHN^S DISEASE
     Route: 042
     Dates: start: 20140725, end: 20140729
  11. LEVONORGESTREL. [Concomitant]
     Active Substance: LEVONORGESTREL
     Indication: UTERINE DISORDER
     Route: 065
     Dates: start: 20141205
  12. PANADOL [Concomitant]
     Active Substance: ACETAMINOPHEN
     Indication: HEADACHE
     Route: 048
  13. USTEKINUMAB [Suspect]
     Active Substance: USTEKINUMAB
     Indication: CROHN^S DISEASE
     Route: 058
     Dates: start: 20160301
  14. TEMAZEPAM. [Concomitant]
     Active Substance: TEMAZEPAM
     Indication: CROHN^S DISEASE
     Route: 048
     Dates: start: 20140725, end: 20140821
  15. MORPHINE [Concomitant]
     Active Substance: MORPHINE
     Indication: CROHN^S DISEASE
     Route: 042
     Dates: start: 20140724, end: 20140724

REACTIONS (1)
  - Basal cell carcinoma [Not Recovered/Not Resolved]

NARRATIVE: CASE EVENT DATE: 20140221
